FAERS Safety Report 19621414 (Version 1)
Quarter: 2021Q3

REPORT INFORMATION
  Report Type: Spontaneous
  Country: US (occurrence: US)
  Receive Date: 20210728
  Receipt Date: 20210728
  Transmission Date: 20211014
  Serious: Yes (Other)
  Sender: FDA-Public Use
  Company Number: US-BAYER-2021-180428

PATIENT
  Age: 47 Year
  Sex: Female

DRUGS (2)
  1. MIRENA [Suspect]
     Active Substance: LEVONORGESTREL
     Indication: ABNORMAL UTERINE BLEEDING
  2. MIRENA [Suspect]
     Active Substance: LEVONORGESTREL
     Indication: MENSTRUAL DISORDER
     Dosage: 20 ?G, CONT
     Route: 015
     Dates: start: 20200922

REACTIONS (3)
  - Vaginal haemorrhage [None]
  - Device dislocation [Not Recovered/Not Resolved]
  - Adverse event [None]

NARRATIVE: CASE EVENT DATE: 20210610
